FAERS Safety Report 14158487 (Version 1)
Quarter: 2017Q4

REPORT INFORMATION
  Report Type: Spontaneous
  Country: US (occurrence: US)
  Receive Date: 20171106
  Receipt Date: 20171106
  Transmission Date: 20180321
  Serious: Yes (Death)
  Sender: FDA-Public Use
  Company Number: US-BIOGEN-2013BI086562

PATIENT
  Age: 57 Year
  Sex: Female

DRUGS (1)
  1. AVONEX [Suspect]
     Active Substance: INTERFERON BETA-1A
     Indication: MULTIPLE SCLEROSIS
     Route: 030
     Dates: start: 20051021

REACTIONS (4)
  - Balance disorder [Recovered/Resolved]
  - Fall [Recovered/Resolved]
  - Haemorrhage [Fatal]
  - Head injury [Recovered/Resolved]

NARRATIVE: CASE EVENT DATE: 20101126
